FAERS Safety Report 24157453 (Version 2)
Quarter: 2024Q4

REPORT INFORMATION
  Report Type: Report from Study
  Country: US (occurrence: US)
  Receive Date: 20240731
  Receipt Date: 20241014
  Transmission Date: 20250115
  Serious: Yes (Hospitalization, Other)
  Sender: ABBVIE
  Company Number: US-ABBVIE-5856002

PATIENT
  Sex: Female
  Weight: 108.86 kg

DRUGS (1)
  1. SKYRIZI [Suspect]
     Active Substance: RISANKIZUMAB-RZAA
     Indication: Crohn^s disease
     Route: 058
     Dates: start: 202305

REACTIONS (3)
  - Ostomy bag placement [Unknown]
  - Maternal exposure during pregnancy [Unknown]
  - Hospitalisation [Unknown]

NARRATIVE: CASE EVENT DATE: 20230926
